FAERS Safety Report 10884721 (Version 1)
Quarter: 2015Q1

REPORT INFORMATION
  Report Type: Spontaneous
  Country: US (occurrence: None)
  Receive Date: 20150227
  Receipt Date: 20150227
  Transmission Date: 20150721
  Serious: Yes (Other)
  Sender: FDA-Public Use
  Company Number: BL-2014-010334

PATIENT
  Sex: Female

DRUGS (1)
  1. SHOWER TO SHOWER POWDER(POWDER) [Suspect]
     Active Substance: TALC
     Indication: POOR PERSONAL HYGIENE
     Dates: start: 1962, end: 2014

REACTIONS (1)
  - Ovarian cancer [None]

NARRATIVE: CASE EVENT DATE: 201010
